FAERS Safety Report 6935718-X (Version None)
Quarter: 2010Q3

REPORT INFORMATION
  Report Type: 
  Country: None (occurrence: None)
  Receive Date: 20100817
  Receipt Date: 20100803
  Transmission Date: 20110219
  Serious: Yes (Other)
  Sender: FDA-Public Use
  Company Number: 2010AP001657

PATIENT
  Age: 57 Year
  Sex: Male

DRUGS (5)
  1. MYCOPHENOLATE MOFETIL [Suspect]
     Indication: VASCULITIS
     Dosage: 500 MG; QD; PO
     Dates: start: 20091204
  2. BENDROFLUMETHIAZIDE [Concomitant]
  3. TRIMETHOPRIM [Concomitant]
  4. SULPHAMETHOXAZOLE [Concomitant]
  5. PREDNISOLONE [Concomitant]

REACTIONS (3)
  - CONDITION AGGRAVATED [None]
  - ERECTILE DYSFUNCTION [None]
  - VASCULITIS [None]
